FAERS Safety Report 9154312 (Version 1)
Quarter: 2013Q1

REPORT INFORMATION
  Report Type: Spontaneous
  Country: IT (occurrence: IT)
  Receive Date: 20130311
  Receipt Date: 20130311
  Transmission Date: 20140127
  Serious: Yes (Hospitalization)
  Sender: FDA-Public Use
  Company Number: IT-PFIZER INC-2013078718

PATIENT
  Age: 53 Year
  Sex: Female

DRUGS (2)
  1. CARBOPLATIN [Suspect]
     Indication: ADENOCARCINOMA
     Dosage: UNK
     Route: 042
     Dates: start: 20130101, end: 20130101
  2. PACLITAXEL [Suspect]
     Indication: ADENOCARCINOMA
     Dosage: UNK
     Route: 042
     Dates: start: 20130101, end: 20130101

REACTIONS (1)
  - Myalgia [Recovered/Resolved]
